FAERS Safety Report 22806116 (Version 3)
Quarter: 2024Q1

REPORT INFORMATION
  Report Type: Spontaneous
  Country: US (occurrence: US)
  Receive Date: 20230809
  Receipt Date: 20240307
  Transmission Date: 20240409
  Serious: No
  Sender: FDA-Public Use
  Company Number: US-KARYOPHARM-2023KPT001639

PATIENT

DRUGS (6)
  1. XPOVIO [Suspect]
     Active Substance: SELINEXOR
     Indication: Plasma cell myeloma
     Dosage: 100 MG, WEEKLY
     Route: 048
     Dates: start: 20230718
  2. DEXAMETHASONE [Concomitant]
     Active Substance: DEXAMETHASONE
  3. APREPITANT [Concomitant]
     Active Substance: APREPITANT
  4. POMALYST [Concomitant]
     Active Substance: POMALIDOMIDE
  5. VELCADE [Concomitant]
     Active Substance: BORTEZOMIB
  6. ONDANSETRON [Concomitant]
     Active Substance: ONDANSETRON

REACTIONS (6)
  - Pollakiuria [Unknown]
  - Vertigo [Recovered/Resolved]
  - Inner ear disorder [Recovered/Resolved]
  - Nausea [Not Recovered/Not Resolved]
  - Vomiting [Unknown]
  - Fatigue [Not Recovered/Not Resolved]

NARRATIVE: CASE EVENT DATE: 20230101
